FAERS Safety Report 10751441 (Version 1)
Quarter: 2015Q1

REPORT INFORMATION
  Report Type: Spontaneous
  Country: HR (occurrence: None)
  Receive Date: 20150128
  Receipt Date: 20150128
  Transmission Date: 20150721
  Serious: Yes (Hospitalization)
  Sender: FDA-Public Use
  Company Number: FK201500304

PATIENT
  Age: 64 Year
  Sex: Female

DRUGS (1)
  1. OXALIPLATIN (OXALIPLATIN) [Suspect]
     Active Substance: OXALIPLATIN
     Indication: RECTAL CANCER
     Dosage: CYCLICAL
     Route: 042
     Dates: end: 20140314

REACTIONS (3)
  - Loss of consciousness [None]
  - Anaphylactic reaction [None]
  - Erythema [None]

NARRATIVE: CASE EVENT DATE: 20140314
